FAERS Safety Report 20418014 (Version 2)
Quarter: 2022Q1

REPORT INFORMATION
  Report Type: Spontaneous
  Country: US (occurrence: None)
  Receive Date: 20220202
  Receipt Date: 20220303
  Transmission Date: 20220423
  Serious: No
  Sender: FDA-Public Use
  Company Number: US-Merck Healthcare KGaA-9296982

PATIENT
  Age: 71 Year
  Sex: Female

DRUGS (2)
  1. METFORMIN [Suspect]
     Active Substance: METFORMIN HYDROCHLORIDE
     Indication: Product used for unknown indication
     Dates: end: 202112
  2. TUKYSA [Concomitant]
     Active Substance: TUCATINIB
     Indication: Breast cancer
     Dates: end: 20220214

REACTIONS (8)
  - Fatigue [Not Recovered/Not Resolved]
  - Memory impairment [Unknown]
  - Confusional state [Not Recovered/Not Resolved]
  - Amnesia [Not Recovered/Not Resolved]
  - Blood glucose fluctuation [Unknown]
  - Speech disorder [Recovered/Resolved]
  - Rash [Recovered/Resolved]
  - Diarrhoea [Recovered/Resolved]

NARRATIVE: CASE EVENT DATE: 20211201
